FAERS Safety Report 23769755 (Version 1)
Quarter: 2024Q2

REPORT INFORMATION
  Report Type: Spontaneous
  Country: DE (occurrence: DE)
  Receive Date: 20240422
  Receipt Date: 20240422
  Transmission Date: 20240715
  Serious: Yes (Other)
  Sender: FDA-Public Use
  Company Number: DE-SANOFI-01979164

PATIENT
  Age: 48 Year
  Sex: Female

DRUGS (2)
  1. DUPIXENT [Suspect]
     Active Substance: DUPILUMAB
     Indication: Dermatitis atopic
     Dosage: 300 MG, QOW
     Route: 058
     Dates: start: 202312, end: 2024
  2. DUPIXENT [Suspect]
     Active Substance: DUPILUMAB
     Indication: Neurodermatitis

REACTIONS (6)
  - Dermatitis herpetiformis [Unknown]
  - Somnolence [Unknown]
  - Chills [Unknown]
  - Pyrexia [Unknown]
  - Antigliadin antibody positive [Unknown]
  - Anti-transglutaminase antibody increased [Unknown]

NARRATIVE: CASE EVENT DATE: 20231201
